FAERS Safety Report 21382264 (Version 1)
Quarter: 2022Q3

REPORT INFORMATION
  Report Type: 
  Country: US (occurrence: US)
  Receive Date: 20220927
  Receipt Date: 20220927
  Transmission Date: 20221027
  Serious: No
  Sender: FDA-Public Use
  Company Number: US-C B Fleet Co Inc-202201-US-000161

PATIENT
  Sex: Female

DRUGS (2)
  1. MONISTAT 7 COMBINATION PACK [Suspect]
     Active Substance: MICONAZOLE NITRATE
     Indication: Fungal infection
     Dosage: I SKIPPED A DAY AND DID IT AGAIN.
  2. HYDROCORTISONE [Suspect]
     Active Substance: HYDROCORTISONE

REACTIONS (5)
  - Condition aggravated [Not Recovered/Not Resolved]
  - Vaginal erosion [Not Recovered/Not Resolved]
  - Vulvovaginal discomfort [Not Recovered/Not Resolved]
  - Vulvovaginal erythema [Not Recovered/Not Resolved]
  - Product dose omission issue [None]
